FAERS Safety Report 6412394-6 (Version None)
Quarter: 2009Q4

REPORT INFORMATION
  Report Type: 
  Country: None (occurrence: None)
  Receive Date: 20091020
  Receipt Date: 20091009
  Transmission Date: 20100525
  Serious: Yes (Hospitalization, Other)
  Sender: FDA-Public Use
  Company Number: 001686

PATIENT
  Age: 29 Year
  Sex: Male
  Weight: 70 kg

DRUGS (3)
  1. LEVODOPA (LEVODOPA) [Suspect]
     Indication: PARKINSON'S DISEASE
     Dosage: (ORAL) ; (1790 MG ORAL) ; (150 MG ORAL) ; (400 MG ORAL)
     Route: 048
     Dates: end: 20050101
  2. LEVODOPA (LEVODOPA) [Suspect]
     Indication: PARKINSON'S DISEASE
     Dosage: (ORAL) ; (1790 MG ORAL) ; (150 MG ORAL) ; (400 MG ORAL)
     Route: 048
     Dates: start: 19980101
  3. APOMORPHINE (APOMORPHINE) [Suspect]
     Indication: ON AND OFF PHENOMENON
     Dosage: (PRN INTRAMUSCULAR)
     Route: 030
     Dates: start: 20000101, end: 20050101

REACTIONS (9)
  - ABNORMAL BEHAVIOUR [None]
  - DRUG TOLERANCE [None]
  - DYSKINESIA [None]
  - DYSTONIA [None]
  - IMPULSIVE BEHAVIOUR [None]
  - MOBILITY DECREASED [None]
  - PARAPHILIA [None]
  - PYROMANIA [None]
  - THEFT [None]
